FAERS Safety Report 7935981-2 (Version None)
Quarter: 2011Q4

REPORT INFORMATION
  Report Type: 
  Country: None (occurrence: None)
  Receive Date: 20111123
  Receipt Date: 20111117
  Transmission Date: 20120403
  Serious: Yes (Hospitalization)
  Sender: FDA-Public Use
  Company Number: MY-B.I. PHARMACEUTICALS,INC./RIDGEFIELD-2011-CS-00497MD

PATIENT
  Age: 71 Year
  Sex: Female

DRUGS (7)
  1. CONCOR [Concomitant]
  2. LEVOTHYROXINE SODIUM [Concomitant]
  3. SPIRONOLACTONE [Concomitant]
  4. PRADAXA [Suspect]
     Indication: CEREBROVASCULAR ACCIDENT PROPHYLAXIS
     Dosage: 220 MG
     Route: 048
     Dates: start: 20110324
  5. LASIX [Concomitant]
  6. PRADAXA [Suspect]
     Route: 048
     Dates: start: 20110519
  7. SIMVASTATIN [Concomitant]

REACTIONS (2)
  - STEVENS-JOHNSON SYNDROME [None]
  - CHEST PAIN [None]
